FAERS Safety Report 15614736 (Version 4)
Quarter: 2019Q1

REPORT INFORMATION
  Report Type: Report from Study
  Country: None (occurrence: CA)
  Receive Date: 20181113
  Receipt Date: 20190205
  Transmission Date: 20190417
  Serious: Yes (Hospitalization, Other)
  Sender: FDA-Public Use
  Company Number: CA-ABBVIE-18K-028-2548334-00

PATIENT
  Age: 60 Year
  Sex: Male
  Weight: 78.09 kg

DRUGS (1)
  1. HUMIRA [Suspect]
     Active Substance: ADALIMUMAB
     Indication: PSORIASIS
     Route: 058
     Dates: start: 20170427, end: 20181129

REACTIONS (17)
  - Polyp [Recovered/Resolved]
  - Coronary artery disease [Unknown]
  - Dizziness [Recovered/Resolved]
  - Chest pain [Unknown]
  - Injection site pain [Recovered/Resolved]
  - Weight decreased [Recovering/Resolving]
  - Gastrooesophageal reflux disease [Recovered/Resolved]
  - Vomiting [Unknown]
  - Wrong technique in product usage process [Unknown]
  - Hyperhidrosis [Unknown]
  - Intraocular pressure increased [Recovered/Resolved]
  - Dyspepsia [Unknown]
  - Retinal vascular occlusion [Recovered/Resolved]
  - Coronary artery bypass [Unknown]
  - Hypertension [Not Recovered/Not Resolved]
  - Pain in extremity [Unknown]
  - Pain in jaw [Unknown]

NARRATIVE: CASE EVENT DATE: 2018
